FAERS Safety Report 6634083-5 (Version None)
Quarter: 2010Q1

REPORT INFORMATION
  Report Type: 
  Country: None (occurrence: None)
  Receive Date: 20100315
  Receipt Date: 20100303
  Transmission Date: 20100710
  Serious: Yes (Other)
  Sender: FDA-Public Use
  Company Number: US-BRISTOL-MYERS SQUIBB COMPANY-15002702

PATIENT
  Sex: Female

DRUGS (3)
  1. ABILIFY [Suspect]
  2. ATIVAN [Concomitant]
  3. EFFEXOR [Concomitant]

REACTIONS (1)
  - HEPATIC STEATOSIS [None]
